FAERS Safety Report 16930507 (Version 1)
Quarter: 2019Q4

REPORT INFORMATION
  Report Type: Spontaneous
  Country: US (occurrence: US)
  Receive Date: 20191017
  Receipt Date: 20191017
  Transmission Date: 20200122
  Serious: Yes (Life-Threatening, Hospitalization, Other)
  Sender: FDA-Public Use
  Company Number: US-VELOXIS PHARMACEUTICALS-2019VELUS-000573

PATIENT
  Age: 61 Year
  Sex: Female

DRUGS (1)
  1. ENVARSUS XR [Suspect]
     Active Substance: TACROLIMUS
     Indication: LIVER TRANSPLANT
     Dosage: DOSING WAS MODIFIED SUCH THAT HER LEVEL WAS THERAPEUTIC

REACTIONS (8)
  - Respiratory failure [Recovered/Resolved]
  - Encephalopathy [Recovered/Resolved]
  - Product use in unapproved indication [Unknown]
  - Acidosis [Unknown]
  - Neurotoxicity [Recovering/Resolving]
  - Drug level increased [Recovered/Resolved]
  - Pleural effusion [Unknown]
  - Apnoea [Recovering/Resolving]
